FAERS Safety Report 7954421-0 (Version None)
Quarter: 2011Q4

REPORT INFORMATION
  Report Type: 
  Country: None (occurrence: None)
  Receive Date: 20111202
  Receipt Date: 20111125
  Transmission Date: 20120403
  Serious: Yes (Other)
  Sender: FDA-Public Use
  Company Number: US-GLAXOSMITHKLINE-A0956122A

PATIENT
  Age: 26 Year
  Sex: Female

DRUGS (2)
  1. LAMICTAL [Suspect]
     Indication: BIPOLAR DISORDER
     Dosage: 100MG PER DAY
     Route: 065
     Dates: start: 20040101
  2. VALPROATE SODIUM [Concomitant]
     Indication: BIPOLAR DISORDER
     Route: 065

REACTIONS (6)
  - SEPTIC NECROSIS [None]
  - WHITE BLOOD CELL COUNT INCREASED [None]
  - PLATELET COUNT DECREASED [None]
  - OROPHARYNGEAL PAIN [None]
  - TONSILLAR HYPERTROPHY [None]
  - PHARYNGITIS [None]
